FAERS Safety Report 12962579 (Version 2)
Quarter: 2016Q4

REPORT INFORMATION
  Report Type: Spontaneous
  Country: TR (occurrence: TR)
  Receive Date: 20161121
  Receipt Date: 20161129
  Transmission Date: 20170207
  Serious: Yes (Other)
  Sender: FDA-Public Use
  Company Number: TR-ALLERGAN-1676996US

PATIENT
  Age: 39 Year
  Sex: Female

DRUGS (4)
  1. ESCITALOPRAM OXALATE UNK [Suspect]
     Active Substance: ESCITALOPRAM OXALATE
     Indication: PRODUCT USED FOR UNKNOWN INDICATION
     Dosage: 10 MG, QD
     Route: 048
  2. ZOFENOPRIL [Concomitant]
     Active Substance: ZOFENOPRIL
     Dosage: 30 MG, QD
  3. TRIMETAZIDINE [Concomitant]
     Active Substance: TRIMETAZIDINE
     Dosage: 40 MG, QD
  4. NIFEDIPINE. [Concomitant]
     Active Substance: NIFEDIPINE
     Dosage: 30 MG, QD

REACTIONS (2)
  - Abortion spontaneous [Unknown]
  - Pregnancy [Unknown]
